FAERS Safety Report 4578265-5 (Version None)
Quarter: 2005Q1

REPORT INFORMATION
  Report Type: 
  Country: None (occurrence: None)
  Receive Date: 20050201
  Receipt Date: 20050201
  Transmission Date: 20050727
  Serious: Yes (Hospitalization)
  Sender: FDA-Public Use
  Company Number: None

PATIENT
  Sex: Female
  Weight: 95.4 kg

DRUGS (4)
  1. PACLITAXEL [Suspect]
     Indication: CERVIX CARCINOMA
     Dosage: 80MG M2 IV WEEKLY
     Route: 042
     Dates: start: 20041026
  2. CARBOPLATIN [Suspect]
     Indication: CERVIX CARCINOMA
     Dosage: AUC 2 WEEKLY IV
     Route: 042
     Dates: start: 20041026
  3. ONDANSETRON [Concomitant]
  4. AMOXICILLIN [Concomitant]

REACTIONS (7)
  - CHEST DISCOMFORT [None]
  - CHRONIC OBSTRUCTIVE AIRWAYS DISEASE EXACERBATED [None]
  - EPISTAXIS [None]
  - LARYNGOTRACHEO BRONCHITIS [None]
  - NASAL DRYNESS [None]
  - RESPIRATORY FAILURE [None]
  - SINUSITIS [None]
